FAERS Safety Report 9201036 (Version 2)
Quarter: 2013Q2

REPORT INFORMATION
  Report Type: Spontaneous
  Country: US (occurrence: None)
  Receive Date: 20130327
  Receipt Date: 20130507
  Transmission Date: 20140414
  Serious: Yes (Life-Threatening, Hospitalization)
  Sender: FDA-Public Use
  Company Number: ADR-2013-00511

PATIENT
  Age: 4 Year
  Sex: Male

DRUGS (1)
  1. BACLOFEN INTRATHECAL [Suspect]
     Indication: DYSTONIA
     Route: 037

REACTIONS (3)
  - Accidental overdose [None]
  - Respiratory depression [None]
  - Device ineffective [None]
